FAERS Safety Report 7276492-X (Version None)
Quarter: 2011Q1

REPORT INFORMATION
  Report Type: 
  Country: None (occurrence: None)
  Receive Date: 20110204
  Receipt Date: 20110125
  Transmission Date: 20110831
  Serious: Yes (Other)
  Sender: FDA-Public Use
  Company Number: JP-WATSON-2011-01146

PATIENT
  Age: 28 Year
  Sex: Female

DRUGS (4)
  1. PREDNISOLONE [Suspect]
     Indication: IMMUNOSUPPRESSION
     Dosage: 1 MG/KG, DAILY
     Route: 048
  2. METHYLPREDNISOLONE ACETATE [Suspect]
     Indication: IMMUNOSUPPRESSION
     Dosage: 1 G, DAILY
     Route: 042
  3. CYCLOPHOSPHAMIDE [Suspect]
     Dosage: 500 MG, DAILY
     Route: 042
  4. CYCLOPHOSPHAMIDE [Suspect]
     Indication: IMMUNOSUPPRESSION
     Dosage: 2 MG/KG, DAILY
     Route: 048

REACTIONS (3)
  - WEGENER'S GRANULOMATOSIS [None]
  - PLEURAL EFFUSION [None]
  - BRONCHOPLEURAL FISTULA [None]
